FAERS Safety Report 12873383 (Version 1)
Quarter: 2016Q4

REPORT INFORMATION
  Report Type: Spontaneous
  Country: GB (occurrence: GB)
  Receive Date: 20161021
  Receipt Date: 20161021
  Transmission Date: 20170207
  Serious: Yes (Disabling)
  Sender: FDA-Public Use
  Company Number: GB-ASTRAZENECA-2016SF09351

PATIENT
  Age: 49 Year
  Sex: Male
  Weight: 124 kg

DRUGS (21)
  1. ALLOPURINOL. [Concomitant]
     Active Substance: ALLOPURINOL
     Dates: start: 20160111
  2. METFORMIN [Concomitant]
     Active Substance: METFORMIN HYDROCHLORIDE
     Dates: start: 20160111
  3. PURIFIED WATER [Concomitant]
     Active Substance: WATER
     Dosage: USE AS DIRECTED
     Dates: start: 20160111
  4. FLUOXETINE [Concomitant]
     Active Substance: FLUOXETINE HYDROCHLORIDE
     Dates: start: 20160111
  5. FOSTAIR [Concomitant]
     Active Substance: BECLOMETHASONE\FORMOTEROL
     Route: 055
     Dates: start: 20160111
  6. LIRAGLUTIDE [Concomitant]
     Active Substance: LIRAGLUTIDE
     Dates: start: 20160111
  7. MEPTAZINOL [Concomitant]
     Active Substance: MEPTAZINOL HYDROCHLORIDE
     Dates: start: 20160111
  8. RAMIPRIL. [Concomitant]
     Active Substance: RAMIPRIL
     Dates: start: 20160111
  9. DAPAGLIFLOZIN [Suspect]
     Active Substance: DAPAGLIFLOZIN
     Route: 048
     Dates: start: 20160818
  10. ATORVASTATIN [Concomitant]
     Active Substance: ATORVASTATIN
     Dates: start: 20160111
  11. FLUCONAZOLE. [Concomitant]
     Active Substance: FLUCONAZOLE
     Dates: start: 20160818, end: 20160819
  12. OMEPRAZOLE. [Concomitant]
     Active Substance: OMEPRAZOLE
     Dates: start: 20160111
  13. GABAPENTIN. [Concomitant]
     Active Substance: GABAPENTIN
     Dates: start: 20160111
  14. AMLODIPINE [Concomitant]
     Active Substance: AMLODIPINE BESYLATE
     Dates: start: 20160111
  15. TIOTROPIUM [Concomitant]
     Active Substance: TIOTROPIUM
     Route: 055
     Dates: start: 20160111
  16. ATENOLOL. [Concomitant]
     Active Substance: ATENOLOL
     Dates: start: 20160111
  17. DULOXETINE. [Concomitant]
     Active Substance: DULOXETINE
     Dates: start: 20160601
  18. GLICLAZIDE [Concomitant]
     Active Substance: GLICLAZIDE
     Dates: start: 20160111
  19. MELOXICAM. [Concomitant]
     Active Substance: MELOXICAM
     Dates: start: 20160111
  20. SALBUTAMOL [Concomitant]
     Active Substance: ALBUTEROL
     Dosage: 2.0DF AS REQUIRED
     Route: 055
     Dates: start: 20160111
  21. ASPIRIN. [Concomitant]
     Active Substance: ASPIRIN
     Dates: start: 20160111

REACTIONS (2)
  - Candida infection [Unknown]
  - Pollakiuria [Recovered/Resolved]
